FAERS Safety Report 5002926-7 (Version None)
Quarter: 2006Q2

REPORT INFORMATION
  Report Type: 
  Country: None (occurrence: None)
  Receive Date: 20060516
  Receipt Date: 20060303
  Transmission Date: 20061013
  Serious: Yes (Other)
  Sender: FDA-Public Use
  Company Number: US-GLAXOSMITHKLINE-A0596031A

PATIENT
  Age: 70 Year
  Sex: Male
  Weight: 70 kg

DRUGS (9)
  1. AVODART [Suspect]
     Indication: BENIGN PROSTATIC HYPERPLASIA
     Dosage: .5MG PER DAY
     Route: 048
     Dates: start: 20060225, end: 20060303
  2. SEROQUEL [Suspect]
     Indication: DRUG USE FOR UNKNOWN INDICATION
     Dosage: 25MGD UNKNOWN
     Route: 065
  3. FLOMAX [Concomitant]
  4. SINEMET [Concomitant]
  5. CARBACHOL [Concomitant]
  6. SYNTHROID [Concomitant]
  7. DILTIAZEM [Concomitant]
  8. PROAMATINE [Concomitant]
  9. ASPIRIN [Concomitant]

REACTIONS (2)
  - HALLUCINATION [None]
  - ORTHOSTATIC HYPOTENSION [None]
